FAERS Safety Report 7806307-X (Version None)
Quarter: 2011Q4

REPORT INFORMATION
  Report Type: 
  Country: None (occurrence: None)
  Receive Date: 20111011
  Receipt Date: 20110930
  Transmission Date: 20120403
  Serious: Yes (Hospitalization)
  Sender: FDA-Public Use
  Company Number: US-BAYER-200944080NA

PATIENT
  Age: 33 Year
  Sex: Female
  Weight: 67.273 kg

DRUGS (6)
  1. HYDROCODONE BITARTRATE [Concomitant]
     Indication: MIGRAINE
     Dates: start: 19900101
  2. DROSPIRENONE AND ETHINYL ESTRADIOL [Suspect]
  3. NAPROXEN (ALEVE) [Concomitant]
     Dates: start: 20071101
  4. YAZ [Suspect]
     Route: 048
     Dates: start: 20070801, end: 20071101
  5. YASMIN [Suspect]
  6. LEXAPRO [Concomitant]
     Indication: DEPRESSION
     Dates: start: 20070701, end: 20090501

REACTIONS (3)
  - CHEST PAIN [None]
  - DYSPNOEA [None]
  - PULMONARY EMBOLISM [None]
